FAERS Safety Report 12166219 (Version 2)
Quarter: 2016Q1

REPORT INFORMATION
  Report Type: Spontaneous
  Country: US (occurrence: US)
  Receive Date: 20160309
  Receipt Date: 20160325
  Transmission Date: 20160526
  Serious: Yes (Death)
  Sender: FDA-Public Use
  Company Number: US-ACTELION-A-NJ2016-132350

PATIENT
  Age: 21 Year
  Sex: Female

DRUGS (7)
  1. ZAVESCA [Suspect]
     Active Substance: MIGLUSTAT
     Indication: NIEMANN-PICK DISEASE
     Dosage: 200 MG, BID
     Route: 048
     Dates: start: 20101020, end: 20160215
  2. CARBAMAZEPINE. [Concomitant]
     Active Substance: CARBAMAZEPINE
     Dosage: 12 ML, TID
     Route: 048
     Dates: start: 20130103
  3. AMOXICILLIN. [Concomitant]
     Active Substance: AMOXICILLIN
     Dosage: 1 DOSE AS DIRECTED
     Route: 048
     Dates: start: 20100121
  4. AMOXICILLIN. [Concomitant]
     Active Substance: AMOXICILLIN
     Dosage: 200 MG, BID
     Route: 048
     Dates: start: 20130103
  5. LORATADINE. [Concomitant]
     Active Substance: LORATADINE
     Dosage: 1 TAB, QD
     Route: 048
     Dates: start: 20130103
  6. JEVITY [Concomitant]
     Active Substance: DIETARY SUPPLEMENT
     Dosage: 1 DOSE AS DIRECTED
     Route: 048
     Dates: start: 20100121
  7. KEPPRA [Concomitant]
     Active Substance: LEVETIRACETAM
     Dosage: 1 DOSE AS DIRECTED
     Route: 048
     Dates: start: 20100121

REACTIONS (3)
  - Cardio-respiratory arrest [Fatal]
  - Dyspnoea [Fatal]
  - Respiratory failure [Fatal]

NARRATIVE: CASE EVENT DATE: 20160215
